FAERS Safety Report 5125772-2 (Version None)
Quarter: 2006Q4

REPORT INFORMATION
  Report Type: 
  Country: None (occurrence: None)
  Receive Date: 20061010
  Receipt Date: 20061010
  Transmission Date: 20070319
  Serious: Yes (Other)
  Sender: FDA-Public Use
  Company Number: None

PATIENT
  Age: 16 Year
  Sex: Female
  Weight: 72.5755 kg

DRUGS (2)
  1. PHENTERMINE HCL [Suspect]
     Indication: INSULIN RESISTANCE
     Dosage: 1 1 PO
     Route: 048
     Dates: start: 20060925, end: 20061004
  2. FOOD DYES [Concomitant]

REACTIONS (2)
  - HEADACHE [None]
  - NAUSEA [None]
